FAERS Safety Report 8269693-5 (Version None)
Quarter: 2012Q2

REPORT INFORMATION
  Report Type: 
  Country: None (occurrence: None)
  Receive Date: 20120406
  Receipt Date: 20120322
  Transmission Date: 20120825
  Serious: Yes (Congenital Anomaly, Other)
  Sender: FDA-Public Use
  Company Number: 20120177

PATIENT
  Sex: Female

DRUGS (6)
  1. PHENYTOIN SODIUM [Suspect]
     Indication: AFFECTIVE DISORDER
     Dosage: FREQUENCY UNSPECIFIED
  2. PHENYTOIN SODIUM [Suspect]
     Indication: EPILEPSY
     Dosage: FREQUENCY UNSPECIFIED
  3. TOPIRAMATE [Suspect]
     Indication: EPILEPSY
     Dosage: AT LMP UNKNOWN
  4. TOPIRAMATE [Suspect]
     Indication: AFFECTIVE DISORDER
     Dosage: AT LMP UNKNOWN
  5. LAMOTRGINE [Suspect]
     Indication: AFFECTIVE DISORDER
     Dosage: FREQUENCY UNSPECIFIED
  6. LAMOTRGINE [Suspect]
     Indication: EPILEPSY
     Dosage: FREQUENCY UNSPECIFIED

REACTIONS (2)
  - MATERNAL DRUGS AFFECTING FOETUS [None]
  - CONGENITAL SPINAL CORD ANOMALY [None]
